FAERS Safety Report 20618217 (Version 2)
Quarter: 2022Q2

REPORT INFORMATION
  Report Type: Report from Study
  Country: CA (occurrence: CA)
  Receive Date: 20220321
  Receipt Date: 20220624
  Transmission Date: 20220721
  Serious: Yes (Life-Threatening, Hospitalization, Disabling, Other)
  Sender: FDA-Public Use
  Company Number: CA-BoehringerIngelheim-2021-BI-126640

PATIENT
  Age: 85 Year
  Sex: Male

DRUGS (1)
  1. OFEV [Suspect]
     Active Substance: NINTEDANIB
     Indication: Idiopathic pulmonary fibrosis
     Route: 048
     Dates: start: 20160128

REACTIONS (9)
  - Lymphoma [Recovered/Resolved with Sequelae]
  - Pleural effusion [Recovered/Resolved]
  - Arrhythmia [Recovered/Resolved with Sequelae]
  - Pneumonia [Recovering/Resolving]
  - Pleural effusion [Recovered/Resolved]
  - Ageusia [Recovering/Resolving]
  - Diarrhoea [Not Recovered/Not Resolved]
  - Dry mouth [Not Recovered/Not Resolved]
  - Diabetes mellitus [Not Recovered/Not Resolved]

NARRATIVE: CASE EVENT DATE: 20190318
